FAERS Safety Report 8903796 (Version 1)
Quarter: 2012Q4

REPORT INFORMATION
  Report Type: 
  Country: GR (occurrence: GR)
  Receive Date: 20121112
  Receipt Date: 20121112
  Transmission Date: 20130627
  Serious: Yes (Other)
  Sender: FDA-Public Use
  Company Number: GR-MYLANLABS-2012S1022947

PATIENT
  Age: 61 Year
  Sex: Female

DRUGS (2)
  1. CIPROFLOXACIN [Suspect]
     Indication: URINARY TRACT INFECTION
     Route: 042
     Dates: start: 20121028, end: 20121029
  2. OMEPRAZOLE [Concomitant]
     Indication: PROPHYLAXIS
     Dates: start: 20121029

REACTIONS (1)
  - Injection site pruritus [Recovered/Resolved]
